FAERS Safety Report 6086470-4 (Version None)
Quarter: 2009Q1

REPORT INFORMATION
  Report Type: 
  Country: None (occurrence: None)
  Receive Date: 20090223
  Receipt Date: 20090212
  Transmission Date: 20090719
  Serious: Yes (Disabling, Other)
  Sender: FDA-Public Use
  Company Number: PHHY2008CA24330

PATIENT
  Sex: Female

DRUGS (8)
  1. CLOZARIL [Suspect]
     Indication: SCHIZOPHRENIA
     Dosage: 100 MG
     Route: 048
     Dates: start: 20060711
  2. ZYPREXA [Concomitant]
     Dosage: 5 MG
  3. BISACODYL [Concomitant]
     Dosage: 5 MG
  4. EFFEXOR XR [Concomitant]
     Dosage: 150 MG
  5. SENOKOT [Concomitant]
     Dosage: UNK
  6. SOFLAX [Concomitant]
     Dosage: 100 MG
  7. CLONAZEPAM [Concomitant]
     Dosage: 0.5 MG
  8. LACTULOSE [Concomitant]
     Dosage: UNK

REACTIONS (3)
  - BREAST CANCER [None]
  - NEUTROPHIL COUNT DECREASED [None]
  - WHITE BLOOD CELL COUNT DECREASED [None]
